FAERS Safety Report 26131587 (Version 1)
Quarter: 2025Q4

REPORT INFORMATION
  Report Type: Spontaneous
  Country: US (occurrence: US)
  Receive Date: 20251208
  Receipt Date: 20251208
  Transmission Date: 20260118
  Serious: No
  Sender: BAYER HEALTHCARE LLC
  Company Number: US-BAYER-2025A161392

PATIENT

DRUGS (1)
  1. CLARITIN [Suspect]
     Active Substance: LORATADINE
     Indication: Cold urticaria
     Dosage: UNK
     Route: 048

REACTIONS (4)
  - Mouth swelling [None]
  - Oral discomfort [Recovered/Resolved]
  - Mouth haemorrhage [Recovered/Resolved]
  - Insomnia [None]
